FAERS Safety Report 8644625 (Version 3)
Quarter: 2014Q2

REPORT INFORMATION
  Report Type: Spontaneous
  Country: US (occurrence: US)
  Receive Date: 20120630
  Receipt Date: 20140402
  Transmission Date: 20141212
  Serious: Yes (Hospitalization, Other)
  Sender: FDA-Public Use
  Company Number: US-ASTRAZENECA-2012SE34622

PATIENT
  Age: 40 Year
  Sex: Female

DRUGS (16)
  1. NEXIUM [Suspect]
     Indication: GASTROOESOPHAGEAL REFLUX DISEASE
     Route: 048
  2. NEXIUM [Suspect]
     Indication: GASTROOESOPHAGEAL REFLUX DISEASE
     Route: 048
  3. NEXIUM [Suspect]
     Indication: GASTROOESOPHAGEAL REFLUX DISEASE
     Route: 048
     Dates: start: 20070924
  4. ZANTAC [Concomitant]
  5. ZANTAC [Concomitant]
  6. PAREGORIC [Concomitant]
     Dates: start: 20060329
  7. PROCHLORPERAZINE [Concomitant]
     Dates: start: 20060329
  8. AMITRIPTYLINE [Concomitant]
     Dates: start: 20060407
  9. SULFAZINE EC [Concomitant]
     Dates: start: 20060407
  10. HYDROCODONE APAP [Concomitant]
     Dosage: 5/20
     Dates: start: 20051229
  11. LEVAQUIN [Concomitant]
     Dates: start: 20060719
  12. ZYRTEC [Concomitant]
     Dates: start: 20060719
  13. ALPRAZOLAM [Concomitant]
     Dates: start: 20060227
  14. DOXYCYCLINE [Concomitant]
     Dates: start: 20050920
  15. PREDNISONE [Concomitant]
     Dates: start: 20060328
  16. LYRICA [Concomitant]
     Dates: start: 20060119

REACTIONS (10)
  - Intervertebral disc degeneration [Unknown]
  - Intervertebral disc protrusion [Unknown]
  - Intervertebral disc annular tear [Unknown]
  - Osteoporosis [Unknown]
  - Multiple fractures [Unknown]
  - Bone disorder [Unknown]
  - Arthritis [Unknown]
  - Crohn^s disease [Unknown]
  - Rheumatoid arthritis [Unknown]
  - Depression [Unknown]
